FAERS Safety Report 24664979 (Version 1)
Quarter: 2024Q4

REPORT INFORMATION
  Report Type: Spontaneous
  Country: US (occurrence: US)
  Receive Date: 20241126
  Receipt Date: 20241126
  Transmission Date: 20250115
  Serious: Yes (Hospitalization)
  Sender: AMGEN
  Company Number: US-AMGEN-USASP2024229063

PATIENT
  Sex: Female

DRUGS (4)
  1. PROLIA [Suspect]
     Active Substance: DENOSUMAB
     Indication: Product used for unknown indication
     Dosage: 60 MILLIGRAM
     Route: 058
  2. AMOXICILLIN [Concomitant]
     Active Substance: AMOXICILLIN
     Dosage: UNK, UNK
     Dates: start: 20240826
  3. PENICILLIN [Concomitant]
     Active Substance: PENICILLIN
     Dosage: UNK
     Dates: start: 20241015
  4. METHYLPREDNISOLONE [Concomitant]
     Active Substance: METHYLPREDNISOLONE
     Dosage: UNK
     Dates: start: 20241025

REACTIONS (7)
  - Blood sodium decreased [Recovering/Resolving]
  - Headache [Unknown]
  - Tooth disorder [Unknown]
  - Hepatic enzyme increased [Unknown]
  - Oral pain [Unknown]
  - Pain in jaw [Unknown]
  - Tooth loss [Unknown]

NARRATIVE: CASE EVENT DATE: 20240101
